FAERS Safety Report 8853434 (Version 1)
Quarter: 2012Q4

REPORT INFORMATION
  Report Type: 
  Country: BR (occurrence: BR)
  Receive Date: 20121022
  Receipt Date: 20121022
  Transmission Date: 20130627
  Serious: Yes (Other)
  Sender: FDA-Public Use
  Company Number: BR-GLAXOSMITHKLINE-A0998066A

PATIENT
  Sex: Female

DRUGS (2)
  1. SERETIDE [Suspect]
     Indication: ASTHMA
     Dosage: 1PUFF Twice per day
     Route: 065
     Dates: start: 2002
  2. SALBUTAMOL [Suspect]
     Indication: ASTHMATIC CRISIS
     Route: 065
     Dates: start: 2002

REACTIONS (1)
  - Glaucoma [Unknown]
